FAERS Safety Report 14479692 (Version 1)
Quarter: 2018Q1

REPORT INFORMATION
  Report Type: Report from Study
  Country: TW (occurrence: TW)
  Receive Date: 20180202
  Receipt Date: 20180202
  Transmission Date: 20180509
  Serious: Yes (Hospitalization)
  Sender: FDA-Public Use
  Company Number: PHHO2015TW004182

PATIENT
  Age: 3 Year
  Sex: Female
  Weight: 16 kg

DRUGS (6)
  1. TRIAMCINOLONE [Concomitant]
     Active Substance: TRIAMCINOLONE
     Indication: MOUTH ULCERATION
     Dosage: PROPER USE BID
     Route: 065
  2. OXCARBAZEPINE. [Concomitant]
     Active Substance: OXCARBAZEPINE
     Indication: SEIZURE
     Dosage: 60 MG/1CC (5 ML AM AND 1 ML PM) BID
     Route: 048
     Dates: start: 20140617
  3. VIGABATRIN. [Concomitant]
     Active Substance: VIGABATRIN
     Indication: SEIZURE
     Dosage: 500 MG, BID (2 AM AND 1.5 PM)
     Route: 048
     Dates: start: 20140617
  4. EVEROLIMUS. [Suspect]
     Active Substance: EVEROLIMUS
     Indication: EPILEPSY
     Dosage: 15 NG/ML, (9-15 NG/ML)
     Route: 048
     Dates: start: 20141112, end: 20150312
  5. EVEROLIMUS. [Suspect]
     Active Substance: EVEROLIMUS
     Dosage: 15 NG/ML, (9-15 NG/ML)
     Route: 048
     Dates: start: 20150318
  6. LAMOTRIGINE. [Concomitant]
     Active Substance: LAMOTRIGINE
     Indication: SEIZURE
     Dosage: 5 MG, BID (0.5 AM)
     Route: 048
     Dates: start: 20140715

REACTIONS (1)
  - Status epilepticus [Recovered/Resolved]

NARRATIVE: CASE EVENT DATE: 20150313
